FAERS Safety Report 8960714 (Version 1)
Quarter: 2012Q4

REPORT INFORMATION
  Report Type: 
  Country: US (occurrence: US)
  Receive Date: 20121212
  Receipt Date: 20121212
  Transmission Date: 20130627
  Serious: Yes (Other)
  Sender: FDA-Public Use
  Company Number: CHPA2012US024738

PATIENT
  Age: 78 Year
  Sex: Male

DRUGS (1)
  1. MYOFLEX ANALGESIC CREME [Suspect]
     Indication: ARTHRITIS
     Dosage: Unk, 3, 4, or 5 TIMES DAILY AS NEEDED
     Route: 061

REACTIONS (3)
  - Arthritis [Unknown]
  - Walking aid user [Unknown]
  - Incorrect dose administered [Unknown]
